FAERS Safety Report 10273622 (Version 2)
Quarter: 2014Q3

REPORT INFORMATION
  Report Type: Report from Study
  Country: JP (occurrence: JP)
  Receive Date: 20140702
  Receipt Date: 20140702
  Transmission Date: 20150326
  Serious: No
  Sender: FDA-Public Use
  Company Number: JP-SA-THYM-1002914

PATIENT
  Age: 75 Year
  Sex: Female
  Weight: 45 kg

DRUGS (19)
  1. METHYLPREDNISOLONE SODIUM SUCCINATE. [Concomitant]
     Active Substance: METHYLPREDNISOLONE SODIUM SUCCINATE
     Indication: BONE MARROW CONDITIONING REGIMEN
     Dosage: UNK
     Dates: start: 20100204, end: 20100206
  2. URSODEOXYCHOLIC ACID [Concomitant]
     Active Substance: URSODIOL
     Indication: PROPHYLAXIS
     Dosage: UNK
     Dates: start: 20100202, end: 20100512
  3. VALPROATE SODIUM. [Concomitant]
     Active Substance: VALPROATE SODIUM
     Indication: PROPHYLAXIS
     Dosage: UNK
     Dates: start: 20100205, end: 20100207
  4. SULFAMETHOPRIM [Concomitant]
     Active Substance: SULFAMETHOXAZOLE
     Indication: INFECTION PROPHYLAXIS
     Dosage: UNK
     Dates: start: 20100202, end: 20100418
  5. FILGRASTIM [Concomitant]
     Active Substance: FILGRASTIM
     Indication: PROPHYLAXIS
     Dosage: UNK
     Dates: start: 20100210, end: 20100322
  6. THYMOGLOBULINE [Suspect]
     Active Substance: LAPINE T-LYMPHOCYTE IMMUNE GLOBULIN
     Indication: BONE MARROW CONDITIONING REGIMEN
     Dosage: 110 MG, QD
     Route: 042
     Dates: start: 20100204, end: 20100206
  7. FLUDARABINE PHOSPHATE. [Concomitant]
     Active Substance: FLUDARABINE PHOSPHATE
     Indication: BONE MARROW CONDITIONING REGIMEN
     Dosage: UNK
     Dates: start: 20100203, end: 20100207
  8. DEXCHLORPHENIRAMINE MALEATE. [Concomitant]
     Active Substance: DEXCHLORPHENIRAMINE MALEATE
     Indication: PREMEDICATION
     Dosage: UNK
     Dates: start: 20100204, end: 20100206
  9. ACICLOVIR [Concomitant]
     Active Substance: ACYCLOVIR
     Indication: INFECTION PROPHYLAXIS
     Dosage: UNK
     Dates: start: 20100202
  10. TACROLIMUS. [Concomitant]
     Active Substance: TACROLIMUS
     Indication: GRAFT VERSUS HOST DISEASE
     Dosage: UNK
     Dates: start: 20100329, end: 20100329
  11. PLATELETS [Concomitant]
     Active Substance: HUMAN PLATELET, ALLOGENIC
     Indication: ACUTE MYELOID LEUKAEMIA
     Dosage: UNK
     Dates: start: 20100219, end: 20100404
  12. BUSULFAN [Concomitant]
     Active Substance: BUSULFAN
     Indication: BONE MARROW CONDITIONING REGIMEN
     Dosage: UNK
     Dates: start: 20100206, end: 20100207
  13. ITRACONAZOLE. [Concomitant]
     Active Substance: ITRACONAZOLE
     Indication: INFECTION PROPHYLAXIS
     Dosage: UNK
     Dates: start: 20100202, end: 20100824
  14. LEVOFLOXACIN [Concomitant]
     Active Substance: LEVOFLOXACIN
     Indication: INFECTION PROPHYLAXIS
     Dosage: UNK
     Dates: start: 20100202, end: 20100322
  15. BETAMETHASONE [Concomitant]
     Active Substance: BETAMETHASONE
     Indication: GRAFT VERSUS HOST DISEASE
     Dosage: UNK
     Dates: start: 20100222, end: 20100307
  16. CICLOSPORIN [Concomitant]
     Active Substance: CYCLOSPORINE
     Indication: PROPHYLAXIS AGAINST GRAFT VERSUS HOST DISEASE
     Dosage: UNK
     Dates: start: 20100208, end: 20100609
  17. METHOTREXATE [Concomitant]
     Active Substance: METHOTREXATE
     Indication: PROPHYLAXIS AGAINST GRAFT VERSUS HOST DISEASE
     Dosage: UNK
     Dates: start: 20100210, end: 20100322
  18. HYDROCORTISONE SODIUM SUCCINATE [Concomitant]
     Active Substance: HYDROCORTISONE SODIUM SUCCINATE
     Indication: GRAFT VERSUS HOST DISEASE
     Dosage: UNK
     Dates: start: 20100219, end: 20100313
  19. UREA. [Concomitant]
     Active Substance: UREA
     Indication: GRAFT VERSUS HOST DISEASE
     Dosage: UNK
     Dates: start: 20100401, end: 20100402

REACTIONS (1)
  - Pyrexia [Recovered/Resolved]

NARRATIVE: CASE EVENT DATE: 20100204
